FAERS Safety Report 7884247-8 (Version None)
Quarter: 2011Q4

REPORT INFORMATION
  Report Type: 
  Country: None (occurrence: None)
  Receive Date: 20111102
  Receipt Date: 20111031
  Transmission Date: 20120403
  Serious: No
  Sender: FDA-Public Use
  Company Number: US-PFIZER INC-2011250923

PATIENT
  Sex: Male
  Weight: 84.354 kg

DRUGS (2)
  1. PRISTIQ [Suspect]
     Indication: ANXIETY
     Dosage: 50 MG, DAILY
     Route: 048
     Dates: start: 20111001
  2. TRUVADA [Concomitant]
     Indication: HIV INFECTION
     Dosage: UNK

REACTIONS (3)
  - HYPERHIDROSIS [None]
  - NAUSEA [None]
  - INSOMNIA [None]
